FAERS Safety Report 10025143 (Version 2)
Quarter: 2014Q2

REPORT INFORMATION
  Report Type: Report from Study
  Country: CA (occurrence: CA)
  Receive Date: 20140320
  Receipt Date: 20140611
  Transmission Date: 20141212
  Serious: Yes (Hospitalization, Other)
  Sender: FDA-Public Use
  Company Number: CA-SA-2014SA032094

PATIENT
  Age: 65 Year
  Sex: Female
  Weight: 68.88 kg

DRUGS (16)
  1. FLUDARA [Suspect]
     Indication: CHRONIC LYMPHOCYTIC LEUKAEMIA
     Route: 065
     Dates: start: 201003, end: 201101
  2. CYCLOPHOSPHAMIDE [Suspect]
     Indication: CHRONIC LYMPHOCYTIC LEUKAEMIA
     Route: 042
     Dates: start: 201305
  3. DOXORUBICIN [Suspect]
     Indication: CHRONIC LYMPHOCYTIC LEUKAEMIA
     Route: 042
     Dates: start: 201305
  4. NEULASTA [Suspect]
     Indication: CHRONIC LYMPHOCYTIC LEUKAEMIA
     Dosage: FORM: SOLUTION SUBCUTANEOUS
     Route: 065
     Dates: start: 201003, end: 201101
  5. PREDNISONE [Suspect]
     Indication: CHRONIC LYMPHOCYTIC LEUKAEMIA
     Route: 048
     Dates: start: 201305
  6. RITUXAN [Suspect]
     Indication: CHRONIC LYMPHOCYTIC LEUKAEMIA
     Dosage: FORM:SOLUTION INTRAVENOUS
     Route: 042
     Dates: start: 20100412, end: 201009
  7. RITUXAN [Suspect]
     Indication: CHRONIC LYMPHOCYTIC LEUKAEMIA
     Dosage: FORM: SOLUTION INTRAVENOUS
     Route: 042
     Dates: start: 201305, end: 20130808
  8. RITUXAN [Suspect]
     Indication: CHRONIC LYMPHOCYTIC LEUKAEMIA
     Dosage: SOLUTION INTRAVENOUS
     Route: 042
     Dates: start: 20130509
  9. RITUXAN [Suspect]
     Indication: CHRONIC LYMPHOCYTIC LEUKAEMIA
     Dosage: SOLUTION INTRAVENOUS?840.0 MBQ ONE IN EVERY THREE WEEKS.
     Route: 042
     Dates: start: 20100525
  10. VINCRISTINE [Suspect]
     Indication: CHRONIC LYMPHOCYTIC LEUKAEMIA
     Route: 042
     Dates: start: 201305
  11. NEUPOGEN [Suspect]
     Indication: CHRONIC LYMPHOCYTIC LEUKAEMIA
     Dosage: FORM: SOLUTION INTRAVENOUS
     Route: 065
     Dates: start: 201003, end: 201101
  12. BENADRYL [Concomitant]
  13. FISH LIVER OIL/ZINC OXIDE [Concomitant]
  14. CENTRUM [Concomitant]
  15. PROCHLORPERAZINE [Concomitant]
  16. VITAMIN D [Concomitant]

REACTIONS (23)
  - Lymphadenitis [Not Recovered/Not Resolved]
  - Hypotension [Unknown]
  - Blood magnesium decreased [Not Recovered/Not Resolved]
  - Heart rate abnormal [Not Recovered/Not Resolved]
  - Thrombosis [Not Recovered/Not Resolved]
  - Pyrexia [Not Recovered/Not Resolved]
  - Productive cough [Not Recovered/Not Resolved]
  - Platelet count decreased [Unknown]
  - Nausea [Not Recovered/Not Resolved]
  - Clostridium difficile infection [Unknown]
  - Fatigue [Not Recovered/Not Resolved]
  - White blood cell count decreased [Unknown]
  - Febrile neutropenia [Recovered/Resolved]
  - Infection [Not Recovered/Not Resolved]
  - Arthralgia [Not Recovered/Not Resolved]
  - Blood test abnormal [Not Recovered/Not Resolved]
  - Lymph node pain [Not Recovered/Not Resolved]
  - Lymphadenopathy [Not Recovered/Not Resolved]
  - Muscle twitching [Not Recovered/Not Resolved]
  - Weight decreased [Not Recovered/Not Resolved]
  - Malaise [Not Recovered/Not Resolved]
  - Asthenia [Not Recovered/Not Resolved]
  - Disease progression [Not Recovered/Not Resolved]
